FAERS Safety Report 11651632 (Version 1)
Quarter: 2015Q4

REPORT INFORMATION
  Report Type: Spontaneous
  Country: US (occurrence: None)
  Receive Date: 20151021
  Receipt Date: 20151021
  Transmission Date: 20160304
  Serious: Yes (Other)
  Sender: FDA-Public Use
  Company Number: None

PATIENT
  Age: 36 Year
  Sex: Female
  Weight: 53.52 kg

DRUGS (8)
  1. VITAMIN E [Concomitant]
     Active Substance: .ALPHA.-TOCOPHEROL
  2. NSAID [Concomitant]
     Active Substance: UNSPECIFIED INGREDIENT
  3. C [Concomitant]
  4. CIPROFLOXACIN. [Suspect]
     Active Substance: CIPROFLOXACIN
     Indication: KIDNEY INFECTION
     Dosage: 16 PILLS
     Route: 048
     Dates: start: 20151012, end: 20151015
  5. BI-FLEX [Concomitant]
  6. MELOXICAM. [Concomitant]
     Active Substance: MELOXICAM
  7. CRANBERRY PROBIOTIC PILLS [Concomitant]
  8. VITAMIN B12 [Concomitant]
     Active Substance: CYANOCOBALAMIN

REACTIONS (12)
  - Pain [None]
  - Pain in extremity [None]
  - Pollakiuria [None]
  - Renal pain [None]
  - Tendon pain [None]
  - Back pain [None]
  - Insomnia [None]
  - Lethargy [None]
  - Burning sensation [None]
  - Musculoskeletal chest pain [None]
  - Dyspepsia [None]
  - Arthralgia [None]

NARRATIVE: CASE EVENT DATE: 20151012
